FAERS Safety Report 19106130 (Version 1)
Quarter: 2021Q2

REPORT INFORMATION
  Report Type: Report from Study
  Country: JP (occurrence: JP)
  Receive Date: 20210408
  Receipt Date: 20210408
  Transmission Date: 20210717
  Serious: Yes (Other)
  Sender: FDA-Public Use
  Company Number: JP-SUN PHARMACEUTICAL INDUSTRIES LTD-2020R1-270169

PATIENT
  Weight: 85 kg

DRUGS (11)
  1. HIRUDOID LOTION [Concomitant]
     Indication: PSORIASIS
     Dosage: UNK
     Route: 061
     Dates: start: 20140903
  2. HIRUDOID SOFT OINTMENT [Concomitant]
     Indication: PSORIASIS
     Dosage: UNK
     Route: 065
     Dates: start: 20180509
  3. L?MENTHOL [Concomitant]
     Indication: MILIARIA
     Dosage: UNK
     Route: 061
     Dates: start: 20140806
  4. RHYTHMY [Concomitant]
     Active Substance: RILMAZAFONE HYDROCHLORIDE
     Indication: SLEEP DISORDER
     Dosage: UNK
     Route: 065
     Dates: start: 20180312
  5. RHYTHMY [Concomitant]
     Active Substance: RILMAZAFONE HYDROCHLORIDE
     Indication: INSOMNIA
     Dosage: UNK
     Route: 048
     Dates: start: 20140709
  6. EKSALB [Concomitant]
     Indication: PSORIASIS
     Dosage: UNK
     Route: 061
     Dates: start: 20150513
  7. TILDRAKIZUMAB [Suspect]
     Active Substance: TILDRAKIZUMAB
     Indication: PSORIASIS
     Dosage: UNK
     Route: 058
     Dates: start: 20131127
  8. RESTAMIN KOWA CREAME [Concomitant]
     Indication: PSORIASIS
     Dosage: UNK
     Route: 061
     Dates: start: 20131113
  9. RESTAMIN KOWA CREAME [Concomitant]
     Indication: PSORIASIS
     Dosage: UNK
     Route: 061
     Dates: start: 20131113
  10. ADOAIR DISKUS [Concomitant]
     Indication: ASTHMA
     Dosage: 250 MICROGRAM, DAILY
     Route: 065
     Dates: start: 20151029
  11. L?MENTHOL [Concomitant]
     Indication: MILIARIA
     Dosage: UNK
     Route: 061
     Dates: start: 20140806

REACTIONS (1)
  - Prostate cancer [Not Recovered/Not Resolved]

NARRATIVE: CASE EVENT DATE: 20200916
